FAERS Safety Report 5506439-5 (Version None)
Quarter: 2007Q4

REPORT INFORMATION
  Report Type: 
  Country: None (occurrence: None)
  Receive Date: 20071101
  Receipt Date: 20071101
  Transmission Date: 20080405
  Serious: Yes (Hospitalization)
  Sender: FDA-Public Use
  Company Number: None

PATIENT
  Sex: Female
  Weight: 59.45 kg

DRUGS (1)
  1. CISPLATIN [Suspect]
     Dosage: 65 MG
     Dates: start: 20071022, end: 20071022

REACTIONS (2)
  - NAUSEA [None]
  - VOMITING [None]
